FAERS Safety Report 8784193 (Version 1)
Quarter: 2012Q4

REPORT INFORMATION
  Report Type: Report from Study
  Country: US (occurrence: US)
  Receive Date: 20120913
  Receipt Date: 20120913
  Transmission Date: 20130627
  Serious: No
  Sender: FDA-Public Use
  Company Number: US-VERTEX PHARMACEUTICAL INC.-AE-2012-008931

PATIENT
  Age: 44 Year
  Sex: Female
  Weight: 81.82 kg

DRUGS (8)
  1. INCIVEK [Suspect]
     Indication: HEPATITIS C
     Route: 048
  2. RIBAVIRIN [Concomitant]
     Indication: HEPATITIS C
  3. PEGINTRON [Concomitant]
     Indication: HEPATITIS C
  4. MILK OF MAGN SUS [Concomitant]
  5. HYDROCO/APAP [Concomitant]
  6. ETODOLAC [Concomitant]
  7. ALKA-SELTZER [Concomitant]
  8. AMITIZA [Concomitant]

REACTIONS (10)
  - Injection site reaction [Unknown]
  - Bone pain [Unknown]
  - Pyrexia [Unknown]
  - Ocular hyperaemia [Unknown]
  - Glossitis [Unknown]
  - Oropharyngeal pain [Unknown]
  - Abdominal pain [Unknown]
  - Constipation [Unknown]
  - Fatigue [Unknown]
  - Pruritus generalised [Unknown]
